FAERS Safety Report 21064701 (Version 1)
Quarter: 2022Q3

REPORT INFORMATION
  Report Type: Spontaneous
  Country: US (occurrence: None)
  Receive Date: 20220710
  Receipt Date: 20220710
  Transmission Date: 20221027
  Serious: No
  Sender: FDA-Public Use
  Company Number: None

PATIENT
  Age: 33 Year
  Sex: Female
  Weight: 103.5 kg

DRUGS (1)
  1. BENZONATATE [Suspect]
     Active Substance: BENZONATATE
     Indication: COVID-19
     Dosage: OTHER QUANTITY : 1 CAPSULE(S);?FREQUENCY : 3 TIMES A DAY;?
     Route: 048
     Dates: start: 20220709, end: 20220710

REACTIONS (6)
  - Taste disorder [None]
  - Headache [None]
  - Nasal congestion [None]
  - Photophobia [None]
  - Thermal burn [None]
  - Throat irritation [None]

NARRATIVE: CASE EVENT DATE: 20220710
